FAERS Safety Report 14708379 (Version 1)
Quarter: 2018Q2

REPORT INFORMATION
  Report Type: Spontaneous
  Country: US (occurrence: US)
  Receive Date: 20180403
  Receipt Date: 20180403
  Transmission Date: 20180711
  Serious: Yes (Hospitalization, Other)
  Sender: FDA-Public Use
  Company Number: US-AUROBINDO-AUR-APL-2018-017464

PATIENT
  Age: 55 Year
  Sex: Female

DRUGS (1)
  1. CEPHALEXIN 500 MG [Suspect]
     Active Substance: CEPHALEXIN
     Indication: BASAL CELL CARCINOMA
     Dosage: UNK
     Route: 065

REACTIONS (4)
  - Pancreatitis acute [Unknown]
  - Nausea [Unknown]
  - Appetite disorder [Unknown]
  - Abdominal pain upper [Unknown]
